FAERS Safety Report 24390892 (Version 1)
Quarter: 2024Q4

REPORT INFORMATION
  Report Type: Spontaneous
  Country: US (occurrence: US)
  Receive Date: 20241003
  Receipt Date: 20241003
  Transmission Date: 20250114
  Serious: Yes (Other)
  Sender: ALKEM
  Company Number: US-ALKEM LABORATORIES LIMITED-US-ALKEM-2024-18241

PATIENT
  Age: 24 Year

DRUGS (4)
  1. CLOPIDOGREL [Suspect]
     Active Substance: CLOPIDOGREL BISULFATE
     Indication: Antiplatelet therapy
     Dosage: UNK
     Route: 065
  2. ASPIRIN [Suspect]
     Active Substance: ASPIRIN
     Indication: Antiplatelet therapy
     Dosage: AT LEAST 81 MG OF FOR AT LEAST 1 WEEK
     Route: 065
  3. PRASUGREL [Suspect]
     Active Substance: PRASUGREL
     Indication: Antiplatelet therapy
     Dosage: 40 MILLIGRAM
     Route: 048
  4. PRASUGREL [Suspect]
     Active Substance: PRASUGREL
     Dosage: UNK, QD, (5-10 MG)
     Route: 048

REACTIONS (2)
  - Retroperitoneal haematoma [Unknown]
  - Drug hypersensitivity [Unknown]
